FAERS Safety Report 10616721 (Version 1)
Quarter: 2014Q4

REPORT INFORMATION
  Report Type: Spontaneous
  Country: IT (occurrence: IT)
  Receive Date: 20141201
  Receipt Date: 20141201
  Transmission Date: 20150529
  Serious: Yes (Other)
  Sender: FDA-Public Use
  Company Number: IT-WATSON-2014-25486

PATIENT
  Age: 52 Year
  Sex: Male

DRUGS (3)
  1. LORMETAZEPAM (UNKNOWN) [Suspect]
     Active Substance: LORMETAZEPAM
     Indication: SUICIDE ATTEMPT
     Dosage: 12 MG, TOTAL
     Route: 048
     Dates: start: 20141018, end: 20141018
  2. FLURAZEPAM [Suspect]
     Active Substance: FLURAZEPAM\FLURAZEPAM HYDROCHLORIDE
     Indication: SUICIDE ATTEMPT
     Dosage: 150 MG, TOTAL
     Route: 048
     Dates: start: 20141018, end: 20141018
  3. ESOMEPRAZOLE (UNKNOWN) [Suspect]
     Active Substance: ESOMEPRAZOLE
     Indication: SUICIDE ATTEMPT
     Dosage: 560 MG, TOTAL
     Route: 048
     Dates: start: 20141018, end: 20141018

REACTIONS (2)
  - Sopor [Recovering/Resolving]
  - Intentional overdose [Recovering/Resolving]

NARRATIVE: CASE EVENT DATE: 20141018
